FAERS Safety Report 12216772 (Version 1)
Quarter: 2016Q1

REPORT INFORMATION
  Report Type: Spontaneous
  Country: US (occurrence: US)
  Receive Date: 20160329
  Receipt Date: 20160329
  Transmission Date: 20160526
  Serious: No
  Sender: FDA-Public Use
  Company Number: US-PFIZER INC-2016157668

PATIENT
  Age: 56 Year
  Sex: Female
  Weight: 110 kg

DRUGS (2)
  1. SUTENT [Suspect]
     Active Substance: SUNITINIB MALATE
     Dosage: 25 MG, EVERY OTHER DAY
     Dates: start: 20160314
  2. SUTENT [Suspect]
     Active Substance: SUNITINIB MALATE
     Indication: INTRAOCULAR MELANOMA
     Dosage: 25 MG, 1X/DAY
     Route: 048
     Dates: start: 20151201

REACTIONS (3)
  - Oral pain [Recovered/Resolved]
  - Eye oedema [Recovered/Resolved]
  - Product use issue [Unknown]

NARRATIVE: CASE EVENT DATE: 20160107
